FAERS Safety Report 5511085-3 (Version None)
Quarter: 2007Q4

REPORT INFORMATION
  Report Type: 
  Country: None (occurrence: None)
  Receive Date: 20071107
  Receipt Date: 20071026
  Transmission Date: 20080405
  Serious: Yes (Other)
  Sender: FDA-Public Use
  Company Number: 2007AP001100

PATIENT
  Age: 57 Year
  Sex: Female

DRUGS (7)
  1. PACLITAXEL [Suspect]
     Indication: FALLOPIAN TUBE CANCER
     Dosage: 294 MG; 1X, IV
     Route: 042
     Dates: start: 20070620, end: 20071004
  2. PACLITAXEL [Suspect]
  3. CARBOPLATIN [Suspect]
     Indication: CHEMOTHERAPY
     Dosage: 500 MG; IV-INF; IV; 1X
     Route: 042
     Dates: start: 20070620
  4. CARBOPLATIN [Suspect]
     Indication: CHEMOTHERAPY
     Dosage: 500 MG; IV-INF; IV; 1X
     Route: 042
     Dates: start: 20070801
  5. CARBOPLATIN [Suspect]
     Indication: CHEMOTHERAPY
     Dosage: 500 MG; IV-INF; IV; 1X
     Route: 042
     Dates: start: 20070811
  6. CARBOPLATIN [Suspect]
     Indication: CHEMOTHERAPY
     Dosage: 500 MG; IV-INF; IV; 1X
     Route: 042
     Dates: start: 20070822
  7. RANITIDINE HYDROCHLORIDE [Concomitant]

REACTIONS (7)
  - ABDOMINAL PAIN UPPER [None]
  - DYSGEUSIA [None]
  - HYPOAESTHESIA [None]
  - MALAISE [None]
  - MUSCULOSKELETAL DISCOMFORT [None]
  - NAIL DISORDER [None]
  - NEUROTOXICITY [None]
